FAERS Safety Report 17005358 (Version 1)
Quarter: 2019Q4

REPORT INFORMATION
  Report Type: Spontaneous
  Country: US (occurrence: US)
  Receive Date: 20191106
  Receipt Date: 20191106
  Transmission Date: 20200122
  Serious: Yes (Disabling)
  Sender: FDA-Public Use
  Company Number: None

PATIENT
  Age: 37 Year
  Sex: Female
  Weight: 113.4 kg

DRUGS (8)
  1. ALBUTEROL INHALER [Concomitant]
     Active Substance: ALBUTEROL
  2. SINGULAIR [Concomitant]
     Active Substance: MONTELUKAST SODIUM
  3. IBUPROFEN 800 [Concomitant]
     Active Substance: IBUPROFEN
  4. ALBUTEROL SOLUTION FOR NEBULIZER [Concomitant]
  5. PARAGARD T 380A [Suspect]
     Active Substance: COPPER
     Indication: CONTRACEPTION
     Dosage: FREQUENCY: INSIDE DAILY
     Route: 067
     Dates: start: 20170204
  6. LEVOCETIRIZINE [Concomitant]
     Active Substance: LEVOCETIRIZINE
  7. NASAL SPRAY [Concomitant]
     Active Substance: UNSPECIFIED INGREDIENT
  8. IMMITREX 100 [Concomitant]

REACTIONS (11)
  - Asthenia [None]
  - Feeling abnormal [None]
  - Breast pain [None]
  - Weight increased [None]
  - Dyspareunia [None]
  - Fatigue [None]
  - Amnesia [None]
  - Irritability [None]
  - Depression [None]
  - Anxiety [None]
  - Libido decreased [None]
